FAERS Safety Report 17886224 (Version 2)
Quarter: 2020Q2

REPORT INFORMATION
  Report Type: Spontaneous
  Country: LT (occurrence: LT)
  Receive Date: 20200611
  Receipt Date: 20200625
  Transmission Date: 20200714
  Serious: Yes (Other)
  Sender: FDA-Public Use
  Company Number: LT-ABBVIE-20K-234-3435862-00

PATIENT
  Age: 67 Year
  Sex: Male
  Weight: 89 kg

DRUGS (2)
  1. AMPHOTERICIN [Suspect]
     Active Substance: AMPHOTERICIN B
     Indication: PRODUCT USED FOR UNKNOWN INDICATION
     Dosage: ANTIFUNGAL
     Route: 065
     Dates: end: 2020
  2. VENCLYXTO [Suspect]
     Active Substance: VENETOCLAX
     Indication: ACUTE MYELOID LEUKAEMIA
     Dosage: SEVEN DAYS
     Route: 048
     Dates: start: 2020

REACTIONS (1)
  - Renal impairment [Unknown]

NARRATIVE: CASE EVENT DATE: 2020
